FAERS Safety Report 9311462 (Version 1)
Quarter: 2013Q2

REPORT INFORMATION
  Report Type: Spontaneous
  Country: IN (occurrence: IN)
  Receive Date: 20130528
  Receipt Date: 20130528
  Transmission Date: 20140414
  Serious: No
  Sender: FDA-Public Use
  Company Number: IN-GE HEALTHCARE MEDICAL DIAGNOSTICS-OSCN-PR-1305S-0041

PATIENT
  Age: 15 Year
  Sex: Male
  Weight: 56 kg

DRUGS (2)
  1. OMNISCAN [Suspect]
     Indication: GRANULOMA
     Route: 042
     Dates: start: 20130514, end: 20130514
  2. OMNISCAN [Suspect]
     Indication: DIAGNOSTIC PROCEDURE

REACTIONS (2)
  - Chills [Recovered/Resolved]
  - Pyrexia [Recovered/Resolved]
